FAERS Safety Report 23867666 (Version 10)
Quarter: 2025Q3

REPORT INFORMATION
  Report Type: Report from Study
  Country: US (occurrence: US)
  Receive Date: 20240517
  Receipt Date: 20250711
  Transmission Date: 20251020
  Serious: Yes (Death, Life-Threatening, Hospitalization, Disabling, Other)
  Sender: JOHNSON AND JOHNSON
  Company Number: US-JNJFOC-20240538900

PATIENT
  Age: 80 Year
  Sex: Male
  Weight: 74.8 kg

DRUGS (16)
  1. CISAPRIDE [Suspect]
     Active Substance: CISAPRIDE
     Indication: Gastrooesophageal reflux disease
     Route: 048
  2. CISAPRIDE [Suspect]
     Active Substance: CISAPRIDE
     Indication: Gastrointestinal motility disorder
     Route: 048
     Dates: start: 20071130
  3. CISAPRIDE [Suspect]
     Active Substance: CISAPRIDE
     Route: 048
     Dates: start: 20081212
  4. CISAPRIDE [Suspect]
     Active Substance: CISAPRIDE
     Route: 048
     Dates: start: 20081218
  5. CISAPRIDE [Suspect]
     Active Substance: CISAPRIDE
     Route: 048
     Dates: start: 20090602
  6. CISAPRIDE [Suspect]
     Active Substance: CISAPRIDE
     Route: 048
     Dates: start: 20171205
  7. CISAPRIDE [Suspect]
     Active Substance: CISAPRIDE
     Route: 048
     Dates: start: 20180525, end: 20240306
  8. ZOCOR [Concomitant]
     Active Substance: SIMVASTATIN
     Indication: Hyperlipidaemia
  9. LEXAPRO [Concomitant]
     Active Substance: ESCITALOPRAM OXALATE
     Indication: Depression
     Dates: start: 20221130
  10. ECOTRIN [Concomitant]
     Active Substance: ASPIRIN
     Indication: Prophylaxis
  11. OMEPRAZOLE [Concomitant]
     Active Substance: OMEPRAZOLE
     Indication: Gastrooesophageal reflux disease
  12. ATIVAN [Concomitant]
     Active Substance: LORAZEPAM
     Indication: Anxiety
     Dates: start: 20071001
  13. ATIVAN [Concomitant]
     Active Substance: LORAZEPAM
     Dates: start: 20180122
  14. PROTONIX [Concomitant]
     Active Substance: PANTOPRAZOLE SODIUM
     Indication: Impaired gastric emptying
     Dates: start: 20120808
  15. LEVSIN [Concomitant]
     Active Substance: HYOSCYAMINE SULFATE
     Indication: Oesophageal spasm
     Dates: start: 20190121
  16. SODIUM BICARBONATE [Concomitant]
     Active Substance: SODIUM BICARBONATE
     Indication: Gastrooesophageal reflux disease

REACTIONS (4)
  - Atrial fibrillation [Fatal]
  - Cardiopulmonary failure [Fatal]
  - Septic shock [Fatal]
  - Pneumonitis aspiration [Fatal]

NARRATIVE: CASE EVENT DATE: 20240502
